FAERS Safety Report 6437828-2 (Version None)
Quarter: 2009Q4

REPORT INFORMATION
  Report Type: 
  Country: None (occurrence: None)
  Receive Date: 20091112
  Receipt Date: 20091029
  Transmission Date: 20100525
  Serious: Yes (Other)
  Sender: FDA-Public Use
  Company Number: GB-GENENTECH-293799

PATIENT
  Age: 11 Year
  Sex: Female

DRUGS (1)
  1. ACTIVASE [Suspect]
     Indication: INTRACRANIAL VENOUS SINUS THROMBOSIS
     Dosage: UNK

REACTIONS (1)
  - RETROPERITONEAL HAEMORRHAGE [None]
